FAERS Safety Report 16873280 (Version 3)
Quarter: 2019Q4

REPORT INFORMATION
  Report Type: Spontaneous
  Country: CN (occurrence: CN)
  Receive Date: 20191001
  Receipt Date: 20191018
  Transmission Date: 20200122
  Serious: Yes (Other)
  Sender: FDA-Public Use
  Company Number: CN-ASTRAZENECA-2019SF38504

PATIENT
  Age: 63 Year
  Sex: Male
  Weight: 52 kg

DRUGS (6)
  1. IRESSA [Suspect]
     Active Substance: GEFITINIB
     Indication: NON-SMALL CELL LUNG CANCER
     Dosage: ONE TABLET A TIME
     Route: 048
     Dates: start: 2019
  2. TAGRISSO [Suspect]
     Active Substance: OSIMERTINIB
     Dosage: ONE TABLET A TIME
     Route: 048
     Dates: start: 201906, end: 201908
  3. IRESSA [Suspect]
     Active Substance: GEFITINIB
     Indication: NON-SMALL CELL LUNG CANCER
     Dosage: ONE TABLET A TIME
     Route: 048
     Dates: start: 201608, end: 2019
  4. ACARBOSE. [Concomitant]
     Active Substance: ACARBOSE
  5. INSULIN [Concomitant]
     Active Substance: INSULIN NOS
     Indication: DIABETES MELLITUS
  6. THIAMAZOLE [Concomitant]
     Active Substance: METHIMAZOLE
     Indication: HYPERTHYROIDISM

REACTIONS (8)
  - Drug resistance [Not Recovered/Not Resolved]
  - Pericardial effusion [Unknown]
  - Metastases to central nervous system [Unknown]
  - Malignant neoplasm progression [Unknown]
  - Pruritus [Unknown]
  - Drug ineffective [Unknown]
  - Rheumatic disorder [Unknown]
  - Rash [Unknown]
